FAERS Safety Report 6774097-8 (Version None)
Quarter: 2010Q2

REPORT INFORMATION
  Report Type: 
  Country: None (occurrence: None)
  Receive Date: 20100616
  Receipt Date: 20100616
  Transmission Date: 20101027
  Serious: Yes (Hospitalization, Other)
  Sender: FDA-Public Use
  Company Number: None

PATIENT
  Age: 53 Year
  Sex: Female
  Weight: 70.3075 kg

DRUGS (1)
  1. ALLI [Suspect]
     Indication: WEIGHT DECREASED
     Dosage: 1 TWICE A DAY PO
     Route: 048
     Dates: start: 20080101, end: 20090401

REACTIONS (6)
  - GASTRIC DISORDER [None]
  - HEPATIC CYST [None]
  - HEPATIC PAIN [None]
  - HYPOPHAGIA [None]
  - SENSATION OF PRESSURE [None]
  - VOMITING [None]
